FAERS Safety Report 6301727-7 (Version None)
Quarter: 2009Q3

REPORT INFORMATION
  Report Type: 
  Country: None (occurrence: None)
  Receive Date: 20090807
  Receipt Date: 20090806
  Transmission Date: 20100115
  Serious: Yes (Other)
  Sender: FDA-Public Use
  Company Number: HK-ROXANE LABORATORIES, INC.-2009-RO-00785RO

PATIENT
  Age: 64 Year
  Sex: Male

DRUGS (4)
  1. AZATHIOPRINE [Suspect]
     Indication: IMMUNOSUPPRESSION
     Dosage: 50 MG
     Dates: start: 19960101
  2. CYCLOSPORINE [Suspect]
     Indication: IMMUNOSUPPRESSION
     Dosage: 175 MG
     Dates: start: 19960101
  3. CYCLOSPORINE [Suspect]
     Dosage: 100 MG
  4. PREDNISOLONE [Suspect]
     Indication: IMMUNOSUPPRESSION
     Dosage: 5 MG
     Dates: start: 19960101

REACTIONS (3)
  - ADENOCARCINOMA [None]
  - EPSTEIN-BARR VIRUS TEST POSITIVE [None]
  - T-CELL LYMPHOMA [None]
